FAERS Safety Report 11772014 (Version 2)
Quarter: 2016Q1

REPORT INFORMATION
  Report Type: Spontaneous
  Country: JP (occurrence: JP)
  Receive Date: 20151124
  Receipt Date: 20160210
  Transmission Date: 20160525
  Serious: Yes (Other)
  Sender: FDA-Public Use
  Company Number: JP-MYLANLABS-2015M1039747

PATIENT

DRUGS (2)
  1. PREDNISOLONE. [Suspect]
     Active Substance: PREDNISOLONE
     Indication: GRANULOMATOSIS WITH POLYANGIITIS
     Dosage: 10 MG, UNK
     Route: 048
  2. METHOTREXATE [Suspect]
     Active Substance: METHOTREXATE
     Indication: GRANULOMATOSIS WITH POLYANGIITIS
     Dosage: 10 MG, UNK
     Route: 048

REACTIONS (2)
  - Skin mass [Not Recovered/Not Resolved]
  - Fat necrosis [Not Recovered/Not Resolved]
